FAERS Safety Report 8055575-0 (Version None)
Quarter: 2011Q4

REPORT INFORMATION
  Report Type: 
  Country: None (occurrence: None)
  Receive Date: 20111213
  Receipt Date: 20101221
  Transmission Date: 20120403
  Serious: Yes (Hospitalization)
  Sender: FDA-Public Use
  Company Number: 2011SP050141

PATIENT
  Age: 81 Year
  Sex: Male

DRUGS (5)
  1. NAMENDA [Suspect]
     Indication: DEMENTIA ALZHEIMER'S TYPE
     Dosage: 20 MG (10 MG,2 IN 1 D),ORAL
     Route: 048
     Dates: start: 20100328
  2. METOPOLOL (METOPROLOL) (25 MILLIGRAM, TABLETS) (METOPROLOL) [Concomitant]
  3. ENALAPRIL (ENALAPRIL) (TABLETS) (ENALAPRIL) [Concomitant]
  4. HYDROCHLOROTHIAZIDE [Suspect]
     Indication: HYPERTENSION
     Dosage: 12.5 MG (12.5 MG,1 IN 1 D),ORAL
     Route: 048
     Dates: start: 20101215, end: 20101215
  5. CRESTOR (ROSUVASTATIN CALCIUM) (10 MILLIGRAM, TABLETS) (ROSUVASTATIN S [Concomitant]

REACTIONS (1)
  - BLOOD PRESSURE INCREASED [None]
